FAERS Safety Report 12797078 (Version 1)
Quarter: 2016Q3

REPORT INFORMATION
  Report Type: Spontaneous
  Country: JP (occurrence: JP)
  Receive Date: 20160929
  Receipt Date: 20160929
  Transmission Date: 20161109
  Serious: Yes (Other)
  Sender: FDA-Public Use
  Company Number: JP-ALLERGAN-1670241US

PATIENT
  Age: 49 Year
  Sex: Female

DRUGS (1)
  1. ASENAPINE MALEATE UNK [Suspect]
     Active Substance: ASENAPINE MALEATE
     Indication: SCHIZOPHRENIA
     Dosage: 5 MG, QD
     Route: 060
     Dates: start: 20160916, end: 20160916

REACTIONS (4)
  - Restlessness [Recovered/Resolved]
  - Paraesthesia oral [Recovered/Resolved]
  - Suicide attempt [Unknown]
  - Hypoaesthesia [Recovered/Resolved]
